FAERS Safety Report 7057166-7 (Version None)
Quarter: 2010Q4

REPORT INFORMATION
  Report Type: 
  Country: None (occurrence: None)
  Receive Date: 20101021
  Receipt Date: 20101021
  Transmission Date: 20110411
  Serious: No
  Sender: FDA-Public Use
  Company Number: None

PATIENT
  Sex: Female
  Weight: 75.9 kg

DRUGS (2)
  1. CARBOPLATIN [Suspect]
     Dosage: 859 MG
  2. TAXOL [Suspect]
     Dosage: 333 MG

REACTIONS (1)
  - MYELODYSPLASTIC SYNDROME [None]
